FAERS Safety Report 7241021-3 (Version None)
Quarter: 2011Q1

REPORT INFORMATION
  Report Type: 
  Country: None (occurrence: None)
  Receive Date: 20110124
  Receipt Date: 20110121
  Transmission Date: 20110831
  Serious: Yes (Life-Threatening, Other)
  Sender: FDA-Public Use
  Company Number: DE-SANOFI-AVENTIS-2010SA054631

PATIENT
  Age: 52 Year
  Sex: Male
  Weight: 110 kg

DRUGS (5)
  1. DIOVANE [Concomitant]
     Route: 065
  2. PHENPROCOUMON [Concomitant]
     Indication: ATRIAL FIBRILLATION
     Route: 065
  3. TORASEMIDE [Concomitant]
     Route: 065
  4. BISOPROLOL [Concomitant]
     Indication: ATRIAL FIBRILLATION
     Route: 065
     Dates: end: 20100808
  5. MULTAQ [Suspect]
     Route: 048
     Dates: start: 20100808, end: 20100809

REACTIONS (4)
  - CONDITION AGGRAVATED [None]
  - TACHYARRHYTHMIA [None]
  - TORSADE DE POINTES [None]
  - ATRIAL FIBRILLATION [None]
